FAERS Safety Report 18973984 (Version 2)
Quarter: 2021Q2

REPORT INFORMATION
  Report Type: Spontaneous
  Country: HU (occurrence: HU)
  Receive Date: 20210305
  Receipt Date: 20210403
  Transmission Date: 20210717
  Serious: Yes (Death, Other)
  Sender: FDA-Public Use
  Company Number: NVSC2021HU049981

PATIENT

DRUGS (1)
  1. REVOLADE [Suspect]
     Active Substance: ELTROMBOPAG OLAMINE
     Indication: CONGENITAL APLASTIC ANAEMIA
     Dosage: UNK
     Route: 065

REACTIONS (4)
  - Cerebrovascular accident [Fatal]
  - Thrombocytopenia [Unknown]
  - Cerebral haemorrhage [Fatal]
  - Bone marrow failure [Unknown]
